FAERS Safety Report 4373006-9 (Version None)
Quarter: 2004Q2

REPORT INFORMATION
  Report Type: 
  Country: None (occurrence: None)
  Receive Date: 20040608
  Receipt Date: 20040129
  Transmission Date: 20050107
  Serious: Yes (Other)
  Sender: FDA-Public Use
  Company Number: DE-ROCHE-357537

PATIENT
  Age: 43 Year
  Sex: Male

DRUGS (3)
  1. PEG-INTERFERON ALFA 2A (RO 25-8310) [Suspect]
     Dosage: FORMULATION REPORTED AS SYRINGES.
     Route: 058
     Dates: start: 20031227
  2. COPEGUS [Suspect]
     Route: 048
     Dates: start: 20031227
  3. PREDNISOLONE [Concomitant]
     Indication: ARTHRITIS
     Route: 048
     Dates: start: 20031227

REACTIONS (4)
  - GINGIVITIS [None]
  - HAEMORRHAGE [None]
  - PYREXIA [None]
  - RASH PRURITIC [None]
